FAERS Safety Report 5843712-5 (Version None)
Quarter: 2008Q3

REPORT INFORMATION
  Report Type: 
  Country: None (occurrence: None)
  Receive Date: 20080813
  Receipt Date: 20080418
  Transmission Date: 20090109
  Serious: No
  Sender: FDA-Public Use
  Company Number: US-BRISTOL-MYERS SQUIBB COMPANY-14159156

PATIENT
  Sex: Female

DRUGS (4)
  1. IXEMPRA KIT [Suspect]
     Indication: BREAST CANCER
     Route: 042
  2. DEXAMETHASONE [Concomitant]
     Indication: PREMEDICATION
  3. H1 ANTAGONIST [Concomitant]
  4. H2 ANTAGONIST [Concomitant]

REACTIONS (1)
  - ORGASM ABNORMAL [None]
